FAERS Safety Report 22208839 (Version 1)
Quarter: 2023Q2

REPORT INFORMATION
  Report Type: Spontaneous
  Country: US (occurrence: US)
  Receive Date: 20230413
  Receipt Date: 20230413
  Transmission Date: 20230721
  Serious: No
  Sender: FDA-Public Use
  Company Number: US-JNJFOC-20190710017

PATIENT
  Age: 82 Year
  Sex: Female
  Weight: 68.100 kg

DRUGS (1)
  1. IMODIUM A-D [Suspect]
     Active Substance: LOPERAMIDE HYDROCHLORIDE
     Indication: Diarrhoea
     Dosage: 1 OR 2 CAPLETS AS NEEDED
     Route: 048

REACTIONS (2)
  - Drug ineffective [Unknown]
  - Product packaging issue [Unknown]
